FAERS Safety Report 4947303-X (Version None)
Quarter: 2006Q1

REPORT INFORMATION
  Report Type: 
  Country: None (occurrence: None)
  Receive Date: 20060313
  Receipt Date: 20060228
  Transmission Date: 20060701
  Serious: Yes (Other)
  Sender: FDA-Public Use
  Company Number: HQWYE936716AUG05

PATIENT
  Age: 55 Year
  Sex: Female

DRUGS (3)
  1. PREMARIN [Suspect]
  2. ESTRATEST H.S. [Suspect]
  3. PROVERA [Suspect]

REACTIONS (5)
  - ANXIETY [None]
  - BREAST CANCER FEMALE [None]
  - CONTRALATERAL BREAST CANCER [None]
  - DEPRESSION [None]
  - MYOCARDIAL INFARCTION [None]
